FAERS Safety Report 9135895 (Version 1)
Quarter: 2013Q1

REPORT INFORMATION
  Report Type: Spontaneous
  Country: US (occurrence: US)
  Receive Date: 20130304
  Receipt Date: 20130304
  Transmission Date: 20140127
  Serious: No
  Sender: FDA-Public Use
  Company Number: US-ABBOTT-12P-163-1002320-00

PATIENT
  Age: 73 Year
  Sex: Male
  Weight: 63.56 kg

DRUGS (2)
  1. ANDROGEL [Suspect]
     Indication: BLOOD TESTOSTERONE DECREASED
     Dosage: APPLIED TO CHEST
     Dates: start: 2012, end: 2012
  2. ANDROGEL [Suspect]

REACTIONS (2)
  - Rash erythematous [Not Recovered/Not Resolved]
  - Unevaluable event [Not Recovered/Not Resolved]
